FAERS Safety Report 7536561-3 (Version None)
Quarter: 2011Q2

REPORT INFORMATION
  Report Type: 
  Country: None (occurrence: None)
  Receive Date: 20110602
  Receipt Date: 20110525
  Transmission Date: 20111010
  Serious: Yes (Hospitalization, Congenital Anomaly, Other)
  Sender: FDA-Public Use
  Company Number: 2011SP024112

PATIENT
  Age: 1 Day
  Sex: Female
  Weight: 2.49 kg

DRUGS (4)
  1. MIRTAZAPINE [Suspect]
     Indication: DRUG EXPOSURE DURING PREGNANCY
     Dosage: TRPL
     Route: 064
  2. ESCITALOPRAM [Suspect]
     Indication: DRUG EXPOSURE DURING PREGNANCY
     Dosage: TRPL
     Route: 064
  3. ACETAMINOPHEN [Concomitant]
  4. AMOXICILLIN + CLAVULANATE POTASSIUM [Concomitant]

REACTIONS (6)
  - HAEMANGIOMA CONGENITAL [None]
  - HYPERBILIRUBINAEMIA NEONATAL [None]
  - CAESAREAN SECTION [None]
  - MATERNAL DEATH AFFECTING FOETUS [None]
  - PREMATURE BABY [None]
  - FEEDING DISORDER NEONATAL [None]
